FAERS Safety Report 10256316 (Version 1)
Quarter: 2014Q2

REPORT INFORMATION
  Report Type: Report from Study
  Country: RU (occurrence: RU)
  Receive Date: 20140624
  Receipt Date: 20140624
  Transmission Date: 20141212
  Serious: Yes (Hospitalization)
  Sender: FDA-Public Use
  Company Number: RU-JNJFOC-20120810578

PATIENT
  Age: 61 Year
  Sex: Female
  Weight: 68 kg

DRUGS (17)
  1. RIVAROXABAN [Suspect]
     Indication: ORTHOPAEDIC PROCEDURE
     Route: 048
     Dates: start: 20120805, end: 20120808
  2. RIVAROXABAN [Suspect]
     Indication: THROMBOSIS PROPHYLAXIS
     Route: 048
     Dates: start: 20120805, end: 20120808
  3. SODIUM CHLORIDE [Concomitant]
     Dates: start: 20120802, end: 20120804
  4. SODIUM CHLORIDE [Concomitant]
     Dates: start: 20120807
  5. INDAP [Concomitant]
     Indication: HYPERTENSION
     Dates: start: 201205
  6. TRAMADOL [Concomitant]
     Dates: start: 20120802, end: 20120807
  7. TRENTAL [Concomitant]
     Dates: start: 20120807
  8. TRENTAL [Concomitant]
  9. TRENTAL [Concomitant]
  10. SIBAZON [Concomitant]
     Dates: start: 20120802, end: 20120804
  11. VITAMIN C [Concomitant]
     Dates: start: 20120802, end: 20120804
  12. METRONIDAZOLE [Concomitant]
     Dates: start: 20120802, end: 20120805
  13. QUAMATEL [Concomitant]
     Dates: start: 20120802, end: 20120805
  14. THROMBO ASS [Concomitant]
     Indication: THROMBOSIS PROPHYLAXIS
     Dates: start: 201205
  15. LOSARTAN [Concomitant]
     Indication: HYPERTENSION
     Dates: start: 201205
  16. CLAFORAN [Concomitant]
     Dates: start: 20120802, end: 20120807
  17. CLEXANE [Concomitant]
     Dates: start: 20120801, end: 20120802

REACTIONS (1)
  - Deep vein thrombosis [Recovering/Resolving]
